FAERS Safety Report 7843588-0 (Version None)
Quarter: 2011Q4

REPORT INFORMATION
  Report Type: 
  Country: None (occurrence: None)
  Receive Date: 20111014
  Receipt Date: 20111003
  Transmission Date: 20120403
  Serious: Yes (Other)
  Sender: FDA-Public Use
  Company Number: 2011SP044375

PATIENT
  Age: 34 Year
  Sex: Female
  Weight: 72.9 kg

DRUGS (4)
  1. MESALAMINE [Concomitant]
  2. LEVOTHYROXINE SODIUM [Concomitant]
  3. IMPLANON [Suspect]
     Indication: CONTRACEPTION
     Dosage: 68 MG, SBDE
     Route: 059
     Dates: start: 20110208
  4. AZULFIDINE [Concomitant]

REACTIONS (3)
  - ABORTION MISSED [None]
  - MATERNAL EXPOSURE DURING PREGNANCY [None]
  - PREGNANCY WITH IMPLANT CONTRACEPTIVE [None]
